FAERS Safety Report 6964726-8 (Version None)
Quarter: 2010Q3

REPORT INFORMATION
  Report Type: 
  Country: None (occurrence: None)
  Receive Date: 20100903
  Receipt Date: 20100827
  Transmission Date: 20110219
  Serious: Yes (Other)
  Sender: FDA-Public Use
  Company Number: US-ASTRAZENECA-2007UW27706

PATIENT
  Age: 665 Month
  Sex: Female
  Weight: 72.6 kg

DRUGS (15)
  1. SEROQUEL [Suspect]
     Indication: ANXIETY
     Route: 048
     Dates: start: 20040831, end: 20070828
  2. SEROQUEL [Suspect]
     Indication: DEPRESSION
     Route: 048
     Dates: start: 20040831, end: 20070828
  3. SEROQUEL [Suspect]
     Indication: BIPOLAR DISORDER
     Route: 048
     Dates: start: 20040831, end: 20070828
  4. SEROQUEL [Suspect]
     Indication: SCHIZOPHRENIA
     Route: 048
     Dates: start: 20040831, end: 20070828
  5. SEROQUEL [Suspect]
     Dosage: 100-200 MG
     Route: 048
     Dates: start: 20050606, end: 20070424
  6. SEROQUEL [Suspect]
     Dosage: 100-200 MG
     Route: 048
     Dates: start: 20050606, end: 20070424
  7. SEROQUEL [Suspect]
     Dosage: 100-200 MG
     Route: 048
     Dates: start: 20050606, end: 20070424
  8. SEROQUEL [Suspect]
     Dosage: 100-200 MG
     Route: 048
     Dates: start: 20050606, end: 20070424
  9. RISPERDAL [Concomitant]
     Indication: DEPRESSION
     Dates: start: 20070601
  10. RISPERDAL [Concomitant]
     Indication: BIPOLAR DISORDER
     Dates: start: 20070601
  11. RISPERDAL [Concomitant]
     Indication: SCHIZOPHRENIA
     Dates: start: 20070601
  12. ZYPREXA [Concomitant]
     Indication: DEPRESSION
     Dosage: 7.5-10 MG
     Dates: start: 20001027, end: 20051006
  13. ZYPREXA [Concomitant]
     Indication: BIPOLAR DISORDER
     Dosage: 7.5-10 MG
     Dates: start: 20001027, end: 20051006
  14. ZYPREXA [Concomitant]
     Indication: SCHIZOPHRENIA
     Dosage: 7.5-10 MG
     Dates: start: 20001027, end: 20051006
  15. ABILIFY [Concomitant]
     Dates: start: 20061026, end: 20070319

REACTIONS (4)
  - BLINDNESS [None]
  - DIABETES MELLITUS [None]
  - DIABETIC COMPLICATION [None]
  - WEIGHT INCREASED [None]
